FAERS Safety Report 21188229 (Version 4)
Quarter: 2023Q1

REPORT INFORMATION
  Report Type: Report from Study
  Country: US (occurrence: US)
  Receive Date: 20220809
  Receipt Date: 20230119
  Transmission Date: 20230417
  Serious: Yes (Hospitalization)
  Sender: FDA-Public Use
  Company Number: US-BoehringerIngelheim-2021-BI-142868

PATIENT
  Age: 83 Year
  Sex: Male

DRUGS (4)
  1. OFEV [Suspect]
     Active Substance: NINTEDANIB
     Indication: Idiopathic pulmonary fibrosis
     Route: 048
     Dates: start: 20211122
  2. OFEV [Suspect]
     Active Substance: NINTEDANIB
     Route: 048
     Dates: start: 20220126
  3. OFEV [Suspect]
     Active Substance: NINTEDANIB
     Route: 048
  4. IMODIUM [Suspect]
     Active Substance: LOPERAMIDE HYDROCHLORIDE
     Indication: Diarrhoea

REACTIONS (18)
  - Illness [Unknown]
  - Urinary tract disorder [Recovering/Resolving]
  - Vomiting [Unknown]
  - Dehydration [Unknown]
  - Urethral stenosis [Unknown]
  - Diarrhoea [Unknown]
  - Diarrhoea [Recovered/Resolved]
  - Speech disorder [Not Recovered/Not Resolved]
  - Headache [Not Recovered/Not Resolved]
  - Abdominal pain lower [Not Recovered/Not Resolved]
  - Blood urine present [Recovered/Resolved with Sequelae]
  - Dyspepsia [Unknown]
  - Constipation [Unknown]
  - Nausea [Recovering/Resolving]
  - Gastrooesophageal reflux disease [Not Recovered/Not Resolved]
  - Diarrhoea [Recovered/Resolved]
  - Cough [Not Recovered/Not Resolved]
  - Epistaxis [Not Recovered/Not Resolved]

NARRATIVE: CASE EVENT DATE: 20211201
